FAERS Safety Report 7429769-9 (Version None)
Quarter: 2011Q2

REPORT INFORMATION
  Report Type: 
  Country: None (occurrence: None)
  Receive Date: 20110421
  Receipt Date: 20110411
  Transmission Date: 20111010
  Serious: Yes (Other)
  Sender: FDA-Public Use
  Company Number: PHEH2010US02032

PATIENT
  Sex: Male
  Weight: 88 kg

DRUGS (8)
  1. METFORMIN [Concomitant]
  2. SIMVASTATIN [Concomitant]
  3. GLEEVEC [Suspect]
     Dosage: 300 MG ALTERNATING WITH 400 MG, DAILY
     Route: 048
     Dates: start: 20081204
  4. GLIMEPIRIDE [Concomitant]
  5. ALLOPURINOL [Concomitant]
  6. IRON [Concomitant]
  7. GLEEVEC [Suspect]
     Dosage: 350 MG, QD
     Dates: start: 20081201
  8. BYSTOLIC [Concomitant]

REACTIONS (6)
  - NAUSEA [None]
  - HAEMATOCHEZIA [None]
  - JOINT SWELLING [None]
  - GOUT [None]
  - HAEMORRHOIDS [None]
  - DIARRHOEA [None]
